FAERS Safety Report 5475839-4 (Version None)
Quarter: 2007Q4

REPORT INFORMATION
  Report Type: 
  Country: None (occurrence: None)
  Receive Date: 20071003
  Receipt Date: 20071003
  Transmission Date: 20080405
  Serious: Yes (Other)
  Sender: FDA-Public Use
  Company Number: B0489540A

PATIENT
  Age: 44 Year
  Sex: Female

DRUGS (3)
  1. EPIVIR [Suspect]
     Indication: DRUG USE FOR UNKNOWN INDICATION
     Route: 048
  2. RETROVIR [Suspect]
     Indication: DRUG USE FOR UNKNOWN INDICATION
     Dosage: 600MG PER DAY
     Route: 048
  3. VIRACEPT [Concomitant]
     Route: 048

REACTIONS (2)
  - JAUNDICE [None]
  - LIVER DISORDER [None]
